FAERS Safety Report 6934587-1 (Version None)
Quarter: 2010Q3

REPORT INFORMATION
  Report Type: 
  Country: None (occurrence: None)
  Receive Date: 20100820
  Receipt Date: 20100817
  Transmission Date: 20110219
  Serious: Yes (Hospitalization)
  Sender: FDA-Public Use
  Company Number: DE-WATSON-2010-10209

PATIENT
  Age: 60 Year
  Sex: Female

DRUGS (2)
  1. FENTANYL CITRATE [Suspect]
     Indication: ARTHRALGIA
     Dosage: 75 UG/H
     Route: 062
  2. FENTANYL CITRATE [Suspect]
     Dosage: 150 UG/H
     Route: 062

REACTIONS (9)
  - ACCIDENTAL OVERDOSE [None]
  - COMA [None]
  - DISTURBANCE IN ATTENTION [None]
  - FALL [None]
  - FATIGUE [None]
  - HYPERAESTHESIA [None]
  - LETHARGY [None]
  - MEDICATION ERROR [None]
  - RADIUS FRACTURE [None]
